FAERS Safety Report 8074845-3 (Version None)
Quarter: 2012Q1

REPORT INFORMATION
  Report Type: 
  Country: None (occurrence: None)
  Receive Date: 20120126
  Receipt Date: 20120120
  Transmission Date: 20120608
  Serious: Yes (Hospitalization)
  Sender: FDA-Public Use
  Company Number: GB-ASTRAZENECA-2012SE04199

PATIENT
  Age: 32 Year
  Sex: Female

DRUGS (2)
  1. PROPOFOL [Suspect]
     Indication: ANAESTHESIA
     Route: 042
     Dates: start: 20120110, end: 20120110
  2. FOLIC ACID [Concomitant]

REACTIONS (3)
  - DYSTONIA [None]
  - DYSKINESIA [None]
  - CHILLS [None]
